FAERS Safety Report 8448429-9 (Version None)
Quarter: 2012Q2

REPORT INFORMATION
  Report Type: 
  Country: None (occurrence: None)
  Receive Date: 20120619
  Receipt Date: 20120613
  Transmission Date: 20120825
  Serious: Yes (Hospitalization, Other)
  Sender: FDA-Public Use
  Company Number: PHHY2012FI023939

PATIENT
  Age: 62 Year
  Sex: Male

DRUGS (2)
  1. ONBREZ [Suspect]
     Indication: CHRONIC OBSTRUCTIVE PULMONARY DISEASE
  2. ACTRAPID [Concomitant]

REACTIONS (17)
  - MICTURITION URGENCY [None]
  - FEELING ABNORMAL [None]
  - RENAL FUNCTION TEST ABNORMAL [None]
  - DRUG INEFFECTIVE [None]
  - DEHYDRATION [None]
  - LIVER FUNCTION TEST ABNORMAL [None]
  - DIABETES MELLITUS [None]
  - WEIGHT DECREASED [None]
  - DYSPNOEA EXERTIONAL [None]
  - DRY EYE [None]
  - VISION BLURRED [None]
  - THIRST [None]
  - GAIT DISTURBANCE [None]
  - HYPERGLYCAEMIA [None]
  - DRY MOUTH [None]
  - DECREASED APPETITE [None]
  - GENERAL PHYSICAL HEALTH DETERIORATION [None]
